FAERS Safety Report 7382122-9 (Version None)
Quarter: 2011Q1

REPORT INFORMATION
  Report Type: 
  Country: None (occurrence: None)
  Receive Date: 20110329
  Receipt Date: 20110328
  Transmission Date: 20110831
  Serious: Yes (Hospitalization)
  Sender: FDA-Public Use
  Company Number: US-GILEAD-2011-0037953

PATIENT
  Sex: Female

DRUGS (8)
  1. LANTUS [Suspect]
     Indication: TYPE 2 DIABETES MELLITUS
     Dates: start: 20090601
  2. VOLTAREN [Suspect]
     Dates: end: 20110211
  3. ASPIRIN [Concomitant]
  4. RANEXA [Suspect]
     Indication: ANGINA PECTORIS
  5. SAXAGLIPTIN [Suspect]
     Indication: TYPE 2 DIABETES MELLITUS
     Dates: start: 20101019
  6. NOVOLOG [Suspect]
     Indication: TYPE 2 DIABETES MELLITUS
     Dates: start: 20090518
  7. NITRATES [Concomitant]
  8. ACTOS [Suspect]
     Indication: TYPE 2 DIABETES MELLITUS
     Dates: start: 20101227, end: 20110211

REACTIONS (1)
  - RENAL FAILURE ACUTE [None]
